FAERS Safety Report 16972174 (Version 2)
Quarter: 2019Q4

REPORT INFORMATION
  Report Type: Report from Study
  Country: US (occurrence: US)
  Receive Date: 20191029
  Receipt Date: 20191220
  Transmission Date: 20200122
  Serious: Yes (Hospitalization)
  Sender: FDA-Public Use
  Company Number: US-ACTELION-A-NJ2019-197475

PATIENT
  Age: 52 Year
  Sex: Male
  Weight: 84.81 kg

DRUGS (21)
  1. CALCIUM CARBONATE. [Concomitant]
     Active Substance: CALCIUM CARBONATE
     Dosage: 600 MG, EVERY MONDAY, WEDNESDAY AND FRIDAY
  2. PROMETHAZINE [Concomitant]
     Active Substance: PROMETHAZINE HYDROCHLORIDE
     Dosage: 25 MG, PRN, EVERY 6 HOURS
  3. BRIMONIDINE [Concomitant]
     Active Substance: BRIMONIDINE TARTRATE
     Dosage: UNK
  4. OXYCODONE-ACET [Concomitant]
     Active Substance: ACETAMINOPHEN\OXYCODONE HYDROCHLORIDE
     Dosage: 5-325 EVERY 4 HOURS
  5. ASPIRIN. [Concomitant]
     Active Substance: ASPIRIN
     Dosage: 81 MG, QD, EVERY NIGHT AT BEDTIME
  6. METOPROLOL. [Concomitant]
     Active Substance: METOPROLOL
     Dosage: 25 MG, BID
  7. OXYCODONE [Concomitant]
     Active Substance: OXYCODONE
     Dosage: 5 MG, PRN, EVERY 4 HOURS
  8. VITAMIN B6 [Concomitant]
     Active Substance: PYRIDOXINE HYDROCHLORIDE
     Dosage: 50 MG, QD
  9. BACLOFEN. [Concomitant]
     Active Substance: BACLOFEN
     Dosage: 10 MG, TID
  10. MIDODRINE [Concomitant]
     Active Substance: MIDODRINE
     Dosage: 5 MG, TID
  11. WARFARIN [Concomitant]
     Active Substance: WARFARIN
     Dosage: 25 MG
  12. UPTRAVI [Suspect]
     Active Substance: SELEXIPAG
     Dosage: 600 MCG, BID
     Route: 048
  13. CLINDAMYCIN. [Concomitant]
     Active Substance: CLINDAMYCIN
     Dosage: 300 MG
  14. MULTIVITAMINS W/MINERALS [Concomitant]
     Active Substance: MINERALS\VITAMINS
     Dosage: UNK, QD
  15. SILDENAFIL. [Concomitant]
     Active Substance: SILDENAFIL
     Dosage: 20 MG, QD
  16. TORSEMIDE. [Concomitant]
     Active Substance: TORSEMIDE
     Dosage: 5 MG, QD
  17. UPTRAVI [Suspect]
     Active Substance: SELEXIPAG
     Indication: PULMONARY ARTERIAL HYPERTENSION
     Dosage: 1400 MCG, BID
     Route: 048
     Dates: start: 20191017
  18. OMEPRAZOLE. [Concomitant]
     Active Substance: OMEPRAZOLE
     Dosage: 20 MG
  19. TACROLIMUS. [Concomitant]
     Active Substance: TACROLIMUS
     Dosage: 0.5 MG, QD
  20. AZATHIOPRINE. [Concomitant]
     Active Substance: AZATHIOPRINE
     Dosage: 100 MG, QD
  21. PRAVASTATIN. [Concomitant]
     Active Substance: PRAVASTATIN
     Dosage: 20 MG, QD

REACTIONS (16)
  - Left ventricular failure [Unknown]
  - Cough [Not Recovered/Not Resolved]
  - Abdominal pain [Unknown]
  - Coagulopathy [Unknown]
  - Haemoglobin decreased [Unknown]
  - Blood creatinine increased [Unknown]
  - Chest discomfort [Unknown]
  - Diarrhoea [Unknown]
  - International normalised ratio increased [Unknown]
  - Blood urea increased [Unknown]
  - Cardiac failure congestive [Unknown]
  - Productive cough [Unknown]
  - Red blood cell count decreased [Unknown]
  - Pulmonary arterial hypertension [Unknown]
  - Fluid overload [Unknown]
  - Dyspnoea [Unknown]

NARRATIVE: CASE EVENT DATE: 20191201
